FAERS Safety Report 8956291 (Version 2)
Quarter: 2013Q1

REPORT INFORMATION
  Report Type: Report from Study
  Country: GT (occurrence: GT)
  Receive Date: 20121210
  Receipt Date: 20130104
  Transmission Date: 20140127
  Serious: Yes (Hospitalization, Other)
  Sender: FDA-Public Use
  Company Number: GT-BAYER-2012-125627

PATIENT
  Age: 6 Year
  Sex: Male

DRUGS (1)
  1. ANTIHEMOPHILIC FACTOR (RECOMBINANT), SUCROSE FORMULATED FS [Suspect]
     Dosage: UNK

REACTIONS (4)
  - Hypothermia [None]
  - Pyrexia [None]
  - Body temperature fluctuation [None]
  - Wrong technique in drug usage process [None]
